FAERS Safety Report 17439862 (Version 1)
Quarter: 2020Q1

REPORT INFORMATION
  Report Type: Spontaneous
  Country: US (occurrence: US)
  Receive Date: 20200220
  Receipt Date: 20200220
  Transmission Date: 20200409
  Serious: No
  Sender: FDA-Public Use
  Company Number: US-GLAXOSMITHKLINE-US2020025201

PATIENT
  Sex: Female

DRUGS (3)
  1. IMIQUIMOD CREAM CREAM [Suspect]
     Active Substance: IMIQUIMOD
     Indication: CHEILITIS
     Dosage: UNK
     Route: 065
  2. BREO ELLIPTA [Suspect]
     Active Substance: FLUTICASONE FUROATE\VILANTEROL TRIFENATATE
     Indication: DYSPNOEA
     Dosage: 1 PUFF(S), 1D
     Route: 055
  3. AQUAPHOR CREAM (UREA) CREAM [Suspect]
     Active Substance: UREA
     Indication: CHEILITIS
     Dosage: UNK

REACTIONS (3)
  - Lip blister [Unknown]
  - Cheilitis [Not Recovered/Not Resolved]
  - Urticaria [Recovered/Resolved]
